FAERS Safety Report 22368542 (Version 1)
Quarter: 2023Q2

REPORT INFORMATION
  Report Type: Spontaneous
  Country: JP (occurrence: JP)
  Receive Date: 20230525
  Receipt Date: 20230525
  Transmission Date: 20230722
  Serious: No
  Sender: FDA-Public Use
  Company Number: JP-PFIZER INC-PV202300089838

PATIENT
  Age: 61 Year
  Sex: Male

DRUGS (2)
  1. PAXLOVID [Suspect]
     Active Substance: NIRMATRELVIR\RITONAVIR
     Indication: COVID-19 treatment
     Dosage: 0.5 SHEET X 5 DAYS (DAILY DOSE: 300 + 200, PAXLOVID DOSE REDUCTION ADMINISTRATION)
     Route: 048
     Dates: start: 20230511
  2. CARBOCYSTEINE [Concomitant]
     Active Substance: CARBOCYSTEINE
     Route: 048

REACTIONS (2)
  - Dysgeusia [Unknown]
  - Incorrect product administration duration [Unknown]

NARRATIVE: CASE EVENT DATE: 20230512
